FAERS Safety Report 6836709-X (Version None)
Quarter: 2010Q3

REPORT INFORMATION
  Report Type: 
  Country: None (occurrence: None)
  Receive Date: 20100708
  Receipt Date: 20100607
  Transmission Date: 20110219
  Serious: Yes (Life-Threatening)
  Sender: FDA-Public Use
  Company Number: 21-703-2010-00002

PATIENT
  Age: 35 Month
  Sex: Female

DRUGS (1)
  1. PRISMASOL BK 0/0/1.2 [Suspect]
     Indication: THERAPEUTIC PROCEDURE
     Dosage: HEMODIALYSIS, INTRAVENOUS
     Route: 042
     Dates: start: 20100607, end: 20100624

REACTIONS (1)
  - CARDIAC ARREST [None]
